FAERS Safety Report 19687408 (Version 1)
Quarter: 2021Q3

REPORT INFORMATION
  Report Type: Report from Study
  Country: GB (occurrence: GB)
  Receive Date: 20210811
  Receipt Date: 20210811
  Transmission Date: 20211014
  Serious: Yes (Death)
  Sender: FDA-Public Use
  Company Number: GB-CELGENEUS-GBR-20210802408

PATIENT
  Age: 69 Year
  Sex: Male

DRUGS (2)
  1. LENALIDOMIDE [Suspect]
     Active Substance: LENALIDOMIDE
     Indication: LYMPHOMA
     Dosage: 25 MILLIGRAM
     Route: 048
  2. PROCARBAZINE [Concomitant]
     Active Substance: PROCARBAZINE
     Indication: LYMPHOMA
     Dosage: 100 MILLIGRAM
     Route: 048
     Dates: start: 20201012, end: 20210216

REACTIONS (1)
  - Death [Fatal]
